FAERS Safety Report 17791867 (Version 2)
Quarter: 2020Q2

REPORT INFORMATION
  Report Type: Spontaneous
  Country: US (occurrence: US)
  Receive Date: 20200515
  Receipt Date: 20200518
  Transmission Date: 20200714
  Serious: No
  Sender: FDA-Public Use
  Company Number: US-PFIZER INC-2019229869

PATIENT
  Age: 69 Year
  Sex: Female
  Weight: 88 kg

DRUGS (2)
  1. PREMARIN [Suspect]
     Active Substance: ESTROGENS, CONJUGATED
     Indication: ATROPHIC VULVOVAGINITIS
     Dosage: 2 G, UNK (APPLY 2 GRAMS THREE TIMES A WEEK/THREE DAYS A WEEK )
     Route: 067
     Dates: start: 201902
  2. PREMARIN [Suspect]
     Active Substance: ESTROGENS, CONJUGATED
     Indication: BLOOD OESTROGEN
     Dosage: 3 G(APPLY 3 GRAMS THREE TIMES A WEEK)

REACTIONS (5)
  - Product prescribing issue [Unknown]
  - Pain [Not Recovered/Not Resolved]
  - Off label use [Unknown]
  - Product use issue [Unknown]
  - Anxiety [Unknown]

NARRATIVE: CASE EVENT DATE: 202005
